FAERS Safety Report 6049013-7 (Version None)
Quarter: 2009Q1

REPORT INFORMATION
  Report Type: 
  Country: None (occurrence: None)
  Receive Date: 20090123
  Receipt Date: 20090113
  Transmission Date: 20090719
  Serious: Yes (Hospitalization)
  Sender: FDA-Public Use
  Company Number: US-ELI_LILLY_AND_COMPANY-US200901002602

PATIENT
  Sex: Male
  Weight: 99.32 kg

DRUGS (4)
  1. BYETTA [Suspect]
     Indication: TYPE 2 DIABETES MELLITUS
     Dosage: 5 UG, 2/D
     Route: 058
     Dates: start: 20060101, end: 20060101
  2. BYETTA [Suspect]
     Dosage: 10 UG, 2/D
     Route: 058
     Dates: start: 20060101, end: 20081101
  3. BYETTA [Suspect]
     Dosage: 10 UG, EACH MORNING
     Route: 058
     Dates: start: 20081101
  4. BYETTA [Suspect]
     Dosage: 20 UG, EACH EVENING
     Dates: start: 20081101

REACTIONS (4)
  - BLOOD GLUCOSE INCREASED [None]
  - DRUG PRESCRIBING ERROR [None]
  - GLYCOSYLATED HAEMOGLOBIN INCREASED [None]
  - NEPHROLITHIASIS [None]
